FAERS Safety Report 5044481-1 (Version None)
Quarter: 2006Q3

REPORT INFORMATION
  Report Type: 
  Country: None (occurrence: None)
  Receive Date: 20060706
  Receipt Date: 20060531
  Transmission Date: 20061208
  Serious: Yes (Hospitalization)
  Sender: FDA-Public Use
  Company Number: JP-JPN-A200601819

PATIENT
  Age: 55 Year
  Sex: Female

DRUGS (23)
  1. SEREVENT [Suspect]
     Indication: ASTHMA
     Dosage: 50MCG TWICE PER DAY
     Route: 055
     Dates: start: 20060104, end: 20060522
  2. COLONEL [Suspect]
     Dosage: 1.2G THREE TIMES PER DAY
     Route: 048
  3. FLUTIDE DISKUS [Concomitant]
     Dosage: 2U TWICE PER DAY
     Route: 055
     Dates: start: 20060117
  4. PL [Concomitant]
     Dosage: 1G THREE TIMES PER DAY
     Route: 048
  5. GASMOTIN [Concomitant]
     Dosage: 10MG PER DAY
     Route: 048
     Dates: start: 20050617
  6. SHAKUYAKU-KANZO-TO [Concomitant]
     Dosage: 2.5G THREE TIMES PER DAY
     Route: 048
     Dates: start: 20060307
  7. KIPRES [Concomitant]
     Dosage: 10MG PER DAY
     Route: 048
     Dates: start: 20010224
  8. VOLTAREN [Concomitant]
     Route: 054
  9. PAXIL [Concomitant]
     Dosage: 20MG TWICE PER DAY
     Route: 048
     Dates: start: 20050617
  10. MEILAX [Concomitant]
     Dosage: 1MG TWICE PER DAY
     Route: 048
     Dates: start: 20030901
  11. LEXOTAN [Concomitant]
     Route: 048
     Dates: start: 19840101
  12. HUSTAZOL [Concomitant]
     Dosage: 10MG THREE TIMES PER DAY
     Route: 048
  13. DEPROMEL [Concomitant]
     Dosage: 50MG TWICE PER DAY
     Route: 048
     Dates: start: 20050617
  14. SEDIEL [Concomitant]
     Dosage: 10MG THREE TIMES PER DAY
     Route: 048
     Dates: start: 20060519
  15. LANDSEN [Concomitant]
     Dosage: 1.5MG PER DAY
     Route: 048
     Dates: start: 20040701
  16. ADETPHOS [Concomitant]
     Dosage: 3G PER DAY
     Route: 048
     Dates: start: 20050617
  17. METHYLCOBAL [Concomitant]
     Dosage: 750MCG PER DAY
     Route: 048
     Dates: start: 20050617
  18. CEPHADOL [Concomitant]
     Dosage: 75MG PER DAY
     Route: 048
     Dates: start: 20050117
  19. BUP-4 [Concomitant]
     Dosage: 20MG PER DAY
     Route: 048
     Dates: start: 20060106
  20. NORVASC [Concomitant]
     Dosage: 5MG PER DAY
     Route: 048
     Dates: start: 20040423
  21. CEREKINON [Concomitant]
     Dosage: 300MG PER DAY
     Route: 048
     Dates: start: 20000201
  22. PARIET [Concomitant]
     Dosage: 10MG PER DAY
     Route: 048
     Dates: start: 20040213
  23. FERROMIA [Concomitant]
     Dosage: 50MG PER DAY
     Route: 048
     Dates: start: 20010220

REACTIONS (6)
  - HYPERCHLORAEMIA [None]
  - HYPOAESTHESIA [None]
  - HYPOKALAEMIA [None]
  - MALAISE [None]
  - RHABDOMYOLYSIS [None]
  - TREMOR [None]
